FAERS Safety Report 12360579 (Version 2)
Quarter: 2016Q2

REPORT INFORMATION
  Report Type: Spontaneous
  Country: US (occurrence: US)
  Receive Date: 20160512
  Receipt Date: 20160524
  Transmission Date: 20160815
  Serious: Yes (Life-Threatening, Hospitalization, Other)
  Sender: FDA-Public Use
  Company Number: US-MDT-ADR-2016-00858

PATIENT
  Sex: Male

DRUGS (1)
  1. LIORESAL [Suspect]
     Active Substance: BACLOFEN
     Dosage: 314.5MCG/DAY
     Route: 037
     Dates: start: 20160129

REACTIONS (6)
  - Respiratory arrest [Unknown]
  - Dyskinesia [Unknown]
  - Infection [Unknown]
  - Drug hypersensitivity [Unknown]
  - Respiration abnormal [Unknown]
  - Drug withdrawal syndrome [Unknown]
